FAERS Safety Report 25220578 (Version 1)
Quarter: 2025Q2

REPORT INFORMATION
  Report Type: Spontaneous
  Country: US (occurrence: None)
  Receive Date: 20250418
  Receipt Date: 20250418
  Transmission Date: 20250716
  Serious: Yes (Death, Hospitalization)
  Sender: FDA-CTU
  Company Number: None

PATIENT
  Age: 65 Year
  Sex: Female

DRUGS (1)
  1. PIRFENIDONE [Suspect]
     Active Substance: PIRFENIDONE
     Indication: Idiopathic pulmonary fibrosis
     Dosage: FREQUENCY : TWICE A DAY;?
     Route: 048
     Dates: start: 20240209, end: 20250309

REACTIONS (4)
  - Pneumonia [None]
  - Asthma-chronic obstructive pulmonary disease overlap syndrome [None]
  - Human rhinovirus test positive [None]
  - General physical health deterioration [None]

NARRATIVE: CASE EVENT DATE: 20250309
